FAERS Safety Report 5314435-6 (Version None)
Quarter: 2007Q2

REPORT INFORMATION
  Report Type: 
  Country: None (occurrence: None)
  Receive Date: 20070502
  Receipt Date: 20070423
  Transmission Date: 20071010
  Serious: Yes (Other)
  Sender: FDA-Public Use
  Company Number: US-ELI_LILLY_AND_COMPANY-US200601000855

PATIENT
  Age: 42 Year
  Sex: Male
  Weight: 145.12 kg

DRUGS (19)
  1. ZYPREXA [Suspect]
     Indication: POST-TRAUMATIC STRESS DISORDER
     Dosage: UNK, UNK
     Route: 048
     Dates: start: 19970528
  2. ZYPREXA [Suspect]
     Dosage: 10 MG, 4/D
     Route: 048
     Dates: start: 20000214, end: 20031030
  3. ZYPREXA [Suspect]
     Dosage: 10 MG, 3/D
     Route: 048
     Dates: start: 20031031, end: 20040714
  4. ZYPREXA [Suspect]
     Dosage: 10 MG, 2/D
     Route: 048
     Dates: start: 20040715
  5. ZYPREXA [Suspect]
     Dosage: 15 MG, EACH MORNING
     Route: 048
     Dates: start: 20040715
  6. ABILIFY [Concomitant]
     Dosage: 30 MG, EACH EVENING
     Dates: start: 20030915, end: 20040130
  7. THIOTHIXENE [Concomitant]
     Dosage: 20 MG, EACH EVENING
     Dates: start: 20020207, end: 20021125
  8. THIOTHIXENE [Concomitant]
     Dosage: 5 MG, EACH EVENING
     Dates: start: 20021126
  9. NEURONTIN [Concomitant]
     Dosage: 1200 MG, 3/D
     Dates: start: 20020207, end: 20030915
  10. NEURONTIN [Concomitant]
     Dosage: 600 MG, DAILY (1/D)
     Dates: start: 20030916, end: 20031030
  11. NEURONTIN [Concomitant]
     Dosage: 1200 MG, 3/D
     Dates: start: 20031031
  12. NEURONTIN [Concomitant]
     Dosage: 600 MG, EACH EVENING
     Dates: start: 20031031
  13. EFFEXOR [Concomitant]
     Dosage: 150 MG, EACH MORNING
     Dates: start: 20020115, end: 20030915
  14. EFFEXOR [Concomitant]
     Dosage: 100 MG, EACH EVENING
     Dates: start: 20030115, end: 20030915
  15. EFFEXOR [Concomitant]
     Dosage: 150 MG, 2/D
     Dates: start: 20030916
  16. EFFEXOR [Concomitant]
     Dosage: 75 MG, DAILY (1/D)
     Dates: start: 20031031
  17. AMITRIPTYLINE HCL [Concomitant]
     Dosage: 25 MG, EACH EVENING
     Dates: start: 20020207
  18. RISPERDAL [Concomitant]
     Dosage: 30 MG, EACH EVENING
     Dates: start: 20030915
  19. GEODON [Concomitant]
     Dosage: 80 MG, 2/D
     Dates: start: 20021125

REACTIONS (18)
  - ALANINE AMINOTRANSFERASE INCREASED [None]
  - ANAEMIA [None]
  - ASPARTATE AMINOTRANSFERASE INCREASED [None]
  - BLOOD CHLORIDE DECREASED [None]
  - BLOOD CREATINE PHOSPHOKINASE INCREASED [None]
  - BLOOD POTASSIUM INCREASED [None]
  - BLOOD SODIUM DECREASED [None]
  - BLOOD TRIGLYCERIDES INCREASED [None]
  - HYPERCHOLESTEROLAEMIA [None]
  - HYPERLIPIDAEMIA [None]
  - HYPERTENSION [None]
  - INSULIN-REQUIRING TYPE II DIABETES MELLITUS [None]
  - OBESITY [None]
  - PANCREATITIS [None]
  - PERIPHERAL VASCULAR DISORDER [None]
  - PRESCRIBED OVERDOSE [None]
  - RECTAL HAEMORRHAGE [None]
  - WEIGHT INCREASED [None]
